FAERS Safety Report 11796158 (Version 1)
Quarter: 2015Q4

REPORT INFORMATION
  Report Type: Spontaneous
  Country: GR (occurrence: GR)
  Receive Date: 20151203
  Receipt Date: 20151203
  Transmission Date: 20160305
  Serious: No
  Sender: FDA-Public Use
  Company Number: GR-GLENMARK PHARMACEUTICALS INC, USA.-2015GMK015016

PATIENT
  Age: 38 Year
  Sex: Male

DRUGS (1)
  1. PRAMIPEXOLE DIHYDROCHLORIDE. [Suspect]
     Active Substance: PRAMIPEXOLE DIHYDROCHLORIDE
     Indication: RESTLESS LEGS SYNDROME
     Dosage: UNK, LOW DOSE
     Route: 065

REACTIONS (1)
  - Drug ineffective for unapproved indication [Unknown]
